FAERS Safety Report 7943786-1 (Version None)
Quarter: 2011Q4

REPORT INFORMATION
  Report Type: 
  Country: None (occurrence: None)
  Receive Date: 20111128
  Receipt Date: 20111118
  Transmission Date: 20120403
  Serious: Yes (Hospitalization, Disabling, Other)
  Sender: FDA-Public Use
  Company Number: US-ASTRAZENECA-2006UW15406

PATIENT
  Age: 45 Year
  Sex: Male
  Weight: 106.6 kg

DRUGS (29)
  1. SEROQUEL [Suspect]
     Indication: ANXIETY
     Route: 048
     Dates: start: 20030101, end: 20061001
  2. SEROQUEL [Suspect]
     Indication: AFFECTIVE DISORDER
     Route: 048
     Dates: start: 20030101, end: 20061001
  3. SEROQUEL [Suspect]
     Route: 048
  4. CYMBALTA [Concomitant]
     Indication: DEPRESSION
     Route: 048
     Dates: start: 20040413
  5. SEROQUEL [Suspect]
     Indication: SLEEP DISORDER
     Route: 048
     Dates: start: 20030101, end: 20061001
  6. SEROQUEL [Suspect]
     Route: 048
     Dates: start: 20050101, end: 20060101
  7. SEROQUEL [Suspect]
     Route: 048
  8. DEPAKOTE [Concomitant]
     Indication: AFFECTIVE DISORDER
     Route: 048
     Dates: start: 20040303
  9. TOXIPEN [Concomitant]
  10. ZYPREXA [Concomitant]
     Indication: AFFECTIVE DISORDER
     Route: 048
     Dates: start: 20040504
  11. AMBIEN [Concomitant]
  12. SEROQUEL [Suspect]
     Route: 048
  13. SEROQUEL [Suspect]
     Route: 048
  14. SEROQUEL [Suspect]
     Dosage: ONE IN THE MORNING AND TWO IN THE EVENING
     Route: 048
  15. SEROQUEL [Suspect]
     Indication: BIPOLAR II DISORDER
     Route: 048
     Dates: start: 20030101, end: 20061001
  16. SEROQUEL [Suspect]
     Route: 048
     Dates: start: 20050101, end: 20060101
  17. SEROQUEL [Suspect]
     Dosage: ONE IN THE MORNING AND TWO IN THE EVENING
     Route: 048
  18. SEROQUEL [Suspect]
     Dosage: ONE IN THE MORNING AND TWO IN THE EVENING
     Route: 048
  19. SEROQUEL [Suspect]
     Dosage: ONE IN THE MORNING AND TWO IN THE EVENING
     Route: 048
  20. SEROQUEL [Suspect]
     Dosage: ONE IN THE MORNING AND TWO IN THE EVENING
     Route: 048
  21. SEROQUEL [Suspect]
     Indication: DEPRESSION
     Route: 048
     Dates: start: 20030101, end: 20061001
  22. SEROQUEL [Suspect]
     Indication: GENERALISED ANXIETY DISORDER
     Route: 048
     Dates: start: 20030101, end: 20061001
  23. SEROQUEL [Suspect]
     Route: 048
     Dates: start: 20050101, end: 20060101
  24. SEROQUEL [Suspect]
     Route: 048
     Dates: start: 20050101, end: 20060101
  25. SEROQUEL [Suspect]
     Route: 048
     Dates: start: 20050101, end: 20060101
  26. SEROQUEL [Suspect]
     Route: 048
     Dates: start: 20050101, end: 20060101
  27. SEROQUEL [Suspect]
     Route: 048
  28. SEROQUEL [Suspect]
     Route: 048
  29. SEROQUEL [Suspect]
     Dosage: ONE IN THE MORNING AND TWO IN THE EVENING
     Route: 048

REACTIONS (7)
  - INSOMNIA [None]
  - FEELING ABNORMAL [None]
  - OFF LABEL USE [None]
  - DRUG DOSE OMISSION [None]
  - DYSPHAGIA [None]
  - PHARYNGEAL DYSKINESIA [None]
  - ASPIRATION [None]
